FAERS Safety Report 8815013 (Version 2)
Quarter: 2012Q4

REPORT INFORMATION
  Report Type: 
  Country: US (occurrence: US)
  Receive Date: 20120928
  Receipt Date: 20121005
  Transmission Date: 20130627
  Serious: No
  Sender: FDA-Public Use
  Company Number: US-ALEXION-A201201792

PATIENT
  Sex: Male

DRUGS (5)
  1. SOLIRIS 300MG [Suspect]
     Indication: HAEMOLYTIC URAEMIC SYNDROME
     Dosage: 90 mg, qw
     Route: 042
     Dates: start: 20120913
  2. PREDNISONE [Concomitant]
     Dosage: 20 mg, qd
     Route: 048
  3. PROCARDIA XL [Concomitant]
     Dosage: 30 mg, qd
     Route: 048
  4. PROTONIX [Concomitant]
     Dosage: 40 mg, qd
     Route: 048
  5. TYLENOL [Concomitant]
     Dosage: UNK, prn
     Route: 048

REACTIONS (1)
  - No adverse event [Recovering/Resolving]
